FAERS Safety Report 21471618 (Version 1)
Quarter: 2022Q4

REPORT INFORMATION
  Report Type: Spontaneous
  Country: US (occurrence: None)
  Receive Date: 20221018
  Receipt Date: 20221018
  Transmission Date: 20230113
  Serious: Yes (Hospitalization)
  Sender: FDA-Public Use
  Company Number: None

PATIENT
  Age: 73 Year
  Sex: Male
  Weight: 70 kg

DRUGS (1)
  1. BEBTELOVIMAB [Suspect]
     Active Substance: BEBTELOVIMAB
     Indication: COVID-19
     Dosage: FREQUENCY : ONCE;?
     Route: 042
     Dates: start: 20221014, end: 20221014

REACTIONS (7)
  - Loss of consciousness [None]
  - Vomiting [None]
  - Lethargy [None]
  - Condition aggravated [None]
  - Mental status changes [None]
  - Aphasia [None]
  - Infusion related reaction [None]

NARRATIVE: CASE EVENT DATE: 20221014
